FAERS Safety Report 4566452-1 (Version None)
Quarter: 2005Q1

REPORT INFORMATION
  Report Type: 
  Country: None (occurrence: None)
  Receive Date: 20050128
  Receipt Date: 20050114
  Transmission Date: 20050727
  Serious: Yes (Disabling, Other)
  Sender: FDA-Public Use
  Company Number: 2005-00161

PATIENT
  Age: 64 Year
  Sex: Male

DRUGS (2)
  1. TRIAMCINOLONE DIACETATE [Suspect]
     Indication: BACK PAIN
     Dosage: 40 MG IN 5ML SOLUTION, SINGLE, EPIDURAL
     Route: 008
  2. BUPIVACAINE [Suspect]
     Indication: BACK PAIN
     Dosage: 0.125 % IN 5ML SOLUTION, SINGLE, EPIDURAL
     Route: 008

REACTIONS (1)
  - PARAPARESIS [None]
